FAERS Safety Report 7020053-4 (Version None)
Quarter: 2010Q3

REPORT INFORMATION
  Report Type: 
  Country: None (occurrence: None)
  Receive Date: 20100929
  Receipt Date: 20100921
  Transmission Date: 20110219
  Serious: Yes (Hospitalization)
  Sender: FDA-Public Use
  Company Number: CO-WYE-H17733010

PATIENT
  Sex: Male

DRUGS (2)
  1. RAPAMUNE [Suspect]
     Indication: PROPHYLAXIS AGAINST TRANSPLANT REJECTION
     Route: 048
     Dates: start: 20090701, end: 20090801
  2. RAPAMUNE [Suspect]
     Route: 048
     Dates: start: 20090801

REACTIONS (10)
  - AMNESIA [None]
  - BONE PAIN [None]
  - BONE SWELLING [None]
  - CONDITION AGGRAVATED [None]
  - DECREASED APPETITE [None]
  - DEPRESSED MOOD [None]
  - GANGRENE [None]
  - MALAISE [None]
  - PROSTATECTOMY [None]
  - VIRAL INFECTION [None]
